FAERS Safety Report 6466930-4 (Version None)
Quarter: 2009Q4

REPORT INFORMATION
  Report Type: 
  Country: None (occurrence: None)
  Receive Date: 20091202
  Receipt Date: 20091124
  Transmission Date: 20100525
  Serious: Yes (Other)
  Sender: FDA-Public Use
  Company Number: US-ASTRAZENECA-2009SE28584

PATIENT
  Age: 86 Year
  Sex: Male
  Weight: 70.3 kg

DRUGS (3)
  1. SYMBICORT [Suspect]
     Indication: CHRONIC OBSTRUCTIVE PULMONARY DISEASE
     Dosage: 640 MCG TOTAL DAILY DOSE
     Route: 055
     Dates: start: 20080101
  2. PRO-AIR [Concomitant]
     Indication: CHRONIC OBSTRUCTIVE PULMONARY DISEASE
  3. FLOMAX [Concomitant]
     Indication: CHRONIC OBSTRUCTIVE PULMONARY DISEASE

REACTIONS (6)
  - DYSKINESIA [None]
  - FALL [None]
  - MULTIPLE FRACTURES [None]
  - MUSCLE SPASMS [None]
  - NERVOUSNESS [None]
  - RIB FRACTURE [None]
